FAERS Safety Report 13229023 (Version 2)
Quarter: 2017Q1

REPORT INFORMATION
  Report Type: Spontaneous
  Country: IT (occurrence: IT)
  Receive Date: 20170214
  Receipt Date: 20170221
  Transmission Date: 20170428
  Serious: Yes (Other)
  Sender: FDA-Public Use
  Company Number: IT-ROCHE-1890661

PATIENT
  Age: 63 Year
  Sex: Female
  Weight: 63 kg

DRUGS (4)
  1. PACLITAXEL. [Suspect]
     Active Substance: PACLITAXEL
     Indication: BREAST CANCER
     Route: 042
     Dates: start: 20160419, end: 20160708
  2. TENORMIN [Concomitant]
     Active Substance: ATENOLOL
  3. HERCEPTIN [Suspect]
     Active Substance: TRASTUZUMAB
     Indication: BREAST CANCER
     Route: 058
     Dates: start: 20160419, end: 20170117
  4. PRITOR (ITALY) [Concomitant]
     Route: 065

REACTIONS (5)
  - Dyspepsia [Unknown]
  - Neutropenia [Recovering/Resolving]
  - Paraesthesia [Not Recovered/Not Resolved]
  - Thrombocytopenia [Recovering/Resolving]
  - Pruritus [Not Recovered/Not Resolved]

NARRATIVE: CASE EVENT DATE: 20160508
